FAERS Safety Report 8603250-3 (Version None)
Quarter: 2012Q3

REPORT INFORMATION
  Report Type: 
  Country: None (occurrence: None)
  Receive Date: 20120817
  Receipt Date: 20120808
  Transmission Date: 20120928
  Serious: Yes (Hospitalization, Other)
  Sender: FDA-Public Use
  Company Number: US-ACTELION-A-NJ2012-68142

PATIENT
  Age: 80 Year
  Sex: Male

DRUGS (4)
  1. TRACLEER [Suspect]
     Dosage: 62.5 MG, BID
     Route: 048
     Dates: start: 20100401, end: 20100501
  2. SILDENAFIL [Concomitant]
  3. TRACLEER [Suspect]
     Indication: PULMONARY ARTERIAL HYPERTENSION
     Dosage: 125 MG, BID
     Route: 048
     Dates: start: 20100501, end: 20120615
  4. ASPIRIN [Concomitant]

REACTIONS (7)
  - LIVER FUNCTION TEST ABNORMAL [None]
  - HEART RATE INCREASED [None]
  - ASPARTATE AMINOTRANSFERASE INCREASED [None]
  - WEIGHT DECREASED [None]
  - ALANINE AMINOTRANSFERASE INCREASED [None]
  - DECREASED APPETITE [None]
  - INFECTION [None]
